FAERS Safety Report 20582744 (Version 1)
Quarter: 2022Q1

REPORT INFORMATION
  Report Type: Report from Study
  Country: FR (occurrence: FR)
  Receive Date: 20220311
  Receipt Date: 20220311
  Transmission Date: 20220423
  Serious: Yes (Hospitalization)
  Sender: FDA-Public Use
  Company Number: FR-PFIZER INC-202200358010

PATIENT
  Age: 26 Year
  Sex: Female

DRUGS (1)
  1. PREGABALIN [Suspect]
     Active Substance: PREGABALIN
     Dosage: 12600 MG, DAILY
     Dates: start: 2019

REACTIONS (9)
  - Overdose [Unknown]
  - Drug dependence [Unknown]
  - Withdrawal syndrome [Unknown]
  - Tachycardia [Unknown]
  - Hyperhidrosis [Unknown]
  - Pain [Unknown]
  - Nausea [Unknown]
  - Anxiety [Unknown]
  - Psychomotor retardation [Unknown]

NARRATIVE: CASE EVENT DATE: 20190101
